FAERS Safety Report 10260586 (Version 2)
Quarter: 2014Q3

REPORT INFORMATION
  Report Type: Spontaneous
  Country: US (occurrence: US)
  Receive Date: 20140626
  Receipt Date: 20140703
  Transmission Date: 20150326
  Serious: Yes (Life-Threatening, Hospitalization)
  Sender: FDA-Public Use
  Company Number: US-ROCHE-1421681

PATIENT
  Age: 68 Year
  Sex: Male

DRUGS (5)
  1. KLONOPIN [Suspect]
     Active Substance: CLONAZEPAM
     Indication: PRODUCT USED FOR UNKNOWN INDICATION
     Route: 048
     Dates: end: 20140506
  2. LATUDA [Suspect]
     Active Substance: LURASIDONE HYDROCHLORIDE
     Indication: BIPOLAR I DISORDER
     Route: 048
     Dates: start: 20140327, end: 20140506
  3. SEROQUEL [Concomitant]
     Active Substance: QUETIAPINE FUMARATE
     Route: 065
     Dates: start: 20140105
  4. CALAN (UNITED STATES) [Concomitant]
     Indication: BIPOLAR I DISORDER
     Route: 048
     Dates: start: 20140327, end: 20140506
  5. ESKALITH [Concomitant]
     Active Substance: LITHIUM CARBONATE
     Route: 065
     Dates: start: 20140105

REACTIONS (4)
  - Bipolar I disorder [Unknown]
  - Overdose [Unknown]
  - Suicide attempt [Recovered/Resolved]
  - Drug ineffective [Unknown]

NARRATIVE: CASE EVENT DATE: 20140506
